FAERS Safety Report 8352447-9 (Version None)
Quarter: 2012Q2

REPORT INFORMATION
  Report Type: 
  Country: None (occurrence: None)
  Receive Date: 20120511
  Receipt Date: 20120508
  Transmission Date: 20120825
  Serious: Yes (Other)
  Sender: FDA-Public Use
  Company Number: PHHY2011US32350

PATIENT
  Sex: Female
  Weight: 58.957 kg

DRUGS (7)
  1. AMBIEN CR [Concomitant]
     Dosage: 12.5 MG, QHS
  2. NAMENDA [Concomitant]
     Dosage: 5 MG, BID
     Dates: start: 20090101
  3. KEPPRA [Concomitant]
     Dosage: 250 MG, QD
     Dates: start: 20090101
  4. LIMBITROL [Concomitant]
     Dosage: 5/12.5 MG 2 AT NIGHT
     Dates: start: 20070101
  5. NUCYNTA [Concomitant]
     Indication: PAIN
     Dosage: 1 DF, Q12H
     Route: 048
     Dates: start: 20111101
  6. CYMBALTA [Concomitant]
     Dosage: 30 MG, QD
     Dates: start: 20090101
  7. GILENYA [Suspect]
     Indication: MULTIPLE SCLEROSIS
     Dosage: 0.5 MG, QD
     Route: 048
     Dates: start: 20110411

REACTIONS (9)
  - INSOMNIA [None]
  - FLATULENCE [None]
  - NAUSEA [None]
  - VISION BLURRED [None]
  - CATARACT NUCLEAR [None]
  - FATIGUE [None]
  - DIZZINESS [None]
  - BLINDNESS [None]
  - PHOTOPHOBIA [None]
